FAERS Safety Report 8237895-X (Version None)
Quarter: 2012Q1

REPORT INFORMATION
  Report Type: 
  Country: None (occurrence: None)
  Receive Date: 20120323
  Receipt Date: 20120316
  Transmission Date: 20120608
  Serious: Yes (Death, Life-Threatening, Other)
  Sender: FDA-Public Use
  Company Number: 2010SP047414

PATIENT
  Age: 74 Year
  Sex: Female
  Weight: 59.1 kg

DRUGS (62)
  1. BETAMETHASONE [Suspect]
     Indication: CEREBRAL ATROPHY
     Dosage: PO
     Route: 048
     Dates: start: 20090901, end: 20090909
  2. BETAMETHASONE [Suspect]
     Indication: CEREBRAL ATROPHY
     Dosage: PO
     Route: 048
     Dates: start: 20090808, end: 20090811
  3. BETAMETHASONE [Suspect]
     Indication: CEREBRAL ATROPHY
     Dosage: PO
     Route: 048
     Dates: start: 20091014, end: 20091024
  4. BETAMETHASONE SODIUM PHOSPHATE [Suspect]
     Indication: ATROPHY
     Dosage: IV
     Route: 042
     Dates: start: 20090820, end: 20090831
  5. CORTRIL [Suspect]
     Indication: CEREBRAL ATROPHY
     Dosage: PO
     Route: 048
     Dates: start: 20090901, end: 20090922
  6. CORTRIL [Suspect]
     Indication: CEREBRAL ATROPHY
     Dosage: PO
     Route: 048
     Dates: start: 20091014, end: 20091110
  7. GABAPENTIN [Concomitant]
  8. ZOSYN [Concomitant]
  9. JUZEN-TAIHO-TO [Concomitant]
  10. ATARAX [Concomitant]
  11. ISOTONIC SODIUM CHLORIDE SOLUTION [Concomitant]
  12. BETAMETHASONE SODIUM PHOSPHATE [Suspect]
     Indication: CEREBRAL ATROPHY
     Dosage: IV
     Route: 042
     Dates: start: 20090910, end: 20090925
  13. BETAMETHASONE SODIUM PHOSPHATE [Suspect]
     Indication: CEREBRAL ATROPHY
     Dosage: IV
     Route: 042
     Dates: start: 20090820, end: 20090831
  14. BETAMETHASONE SODIUM PHOSPHATE [Suspect]
     Indication: CEREBRAL ATROPHY
     Dosage: IV
     Route: 042
     Dates: start: 20090825, end: 20090829
  15. BACTRIM [Concomitant]
  16. DEPAKENE [Concomitant]
  17. PRIMPERAN TAB [Concomitant]
  18. GENTAMICIN SULFATE [Concomitant]
  19. HEPAFLUSH [Concomitant]
  20. MOBENZOCIN [Concomitant]
  21. PHENOBARBITAL TAB [Concomitant]
  22. PIPERACILLIN SODIUM [Concomitant]
  23. AMLODIPINE [Concomitant]
  24. RAMELTEON [Concomitant]
  25. AMOXICILLIN [Concomitant]
  26. MYSTAN [Concomitant]
  27. DIAZEPAM [Concomitant]
  28. CRAVIT (LEVOFLOXACIN HYDRATE) [Concomitant]
  29. TEGRETOL [Concomitant]
  30. PROHEPARUM [Concomitant]
  31. PREDOPA [Concomitant]
  32. SOLDEM 3A (MAINTENANCE MEDIIUM 3) [Concomitant]
  33. LANSOPRAZOLE [Concomitant]
  34. OLMESARTAN MEDOXOMIL [Concomitant]
  35. UBRETID [Concomitant]
  36. LACTEC (LACTATED RINGER'S SOLUTION) [Concomitant]
  37. LACTULOSE [Concomitant]
  38. ASPARA (L-ASPARTATE POTASSIUM) [Concomitant]
  39. MUCOSIL-10 [Concomitant]
  40. ISOTONIC SODIUM CHLORIDE SOLUTION [Concomitant]
  41. EBRANTIL [Concomitant]
  42. SOLDEM (3A (MAINTENANCE MEDIUM 3) [Concomitant]
  43. SODIUM CHLORIDE [Concomitant]
  44. ENTERONON R (ANTIBIOTICS-RESISTANT LACTIC ACID BACTERIAE) [Concomitant]
  45. CEFAZOLIN SODIUM [Concomitant]
  46. TEMODAL [Suspect]
     Indication: ANAPLASTIC ASTROCYTOMA
     Dosage: 75;150;200; MG/QD, PO
     Route: 048
     Dates: start: 20090601, end: 20090712
  47. TEMODAL [Suspect]
     Indication: ANAPLASTIC ASTROCYTOMA
     Dosage: 75;150;200; MG/QD, PO
     Route: 048
     Dates: start: 20091109, end: 20091113
  48. TEMODAL [Suspect]
     Indication: ANAPLASTIC ASTROCYTOMA
     Dosage: 75;150;200; MG/QD, PO
     Route: 048
     Dates: start: 20090810, end: 20090814
  49. TEMODAL [Suspect]
     Indication: ANAPLASTIC ASTROCYTOMA
     Dosage: 75;150;200; MG/QD, PO
     Route: 048
     Dates: start: 20090914, end: 20091016
  50. TEMODAL [Suspect]
     Indication: ANAPLASTIC ASTROCYTOMA
     Dosage: 75;150;200; MG/QD, PO
     Route: 048
     Dates: start: 20091012, end: 20091016
  51. DECADRON [Concomitant]
  52. ZOLPIDEM [Concomitant]
  53. VANCOMYCIN HYDROCHLORIDE [Concomitant]
  54. WATER FOR INJECTIONS [Concomitant]
  55. SELOKEN L [Concomitant]
  56. RINDERON-VG [Concomitant]
  57. AMINOLEBAN (AMINO ACID PREPARATIONS FOR HEPATIC INSUFFICIENCY 1) [Concomitant]
  58. SOLYUGEN G (ACETATED RINGER'S SOLUTION WITH GLUCOSE 1) [Concomitant]
  59. PHENYTOIN SODIUM CAP [Concomitant]
  60. ZONISAMIDE [Concomitant]
  61. STRONGER NEO-MINOPHAGEN C [Concomitant]
  62. SEFIROM [Concomitant]

REACTIONS (9)
  - DELAYED EFFECTS OF RADIATION [None]
  - ANAEMIA [None]
  - HYPOPHAGIA [None]
  - OLIGURIA [None]
  - CEREBRAL ATROPHY [None]
  - DEVICE RELATED INFECTION [None]
  - OROPHARYNGEAL CANDIDIASIS [None]
  - THROMBOCYTOPENIA [None]
  - HYPOALBUMINAEMIA [None]
